FAERS Safety Report 18653300 (Version 1)
Quarter: 2020Q4

REPORT INFORMATION
  Report Type: Spontaneous
  Country: US (occurrence: US)
  Receive Date: 20201222
  Receipt Date: 20201222
  Transmission Date: 20210114
  Serious: No
  Sender: FDA-Public Use
  Company Number: US-LUPIN PHARMACEUTICALS INC.-2020-07733

PATIENT
  Age: 73 Year
  Sex: Female
  Weight: 53.06 kg

DRUGS (1)
  1. TOBRAMYCIN INHALATION SOLUTION USP, 300 MG/5 ML [Suspect]
     Active Substance: TOBRAMYCIN
     Indication: PRODUCT USED FOR UNKNOWN INDICATION
     Dosage: UNK UNK, BID
     Route: 065
     Dates: start: 20200927, end: 20201011

REACTIONS (4)
  - No adverse event [Unknown]
  - Drug delivery system malfunction [Unknown]
  - Inappropriate schedule of product administration [Unknown]
  - Product dose omission issue [Unknown]

NARRATIVE: CASE EVENT DATE: 20201012
